FAERS Safety Report 10901210 (Version 1)
Quarter: 2015Q1

REPORT INFORMATION
  Report Type: Other
  Country: GB (occurrence: GB)
  Receive Date: 20150310
  Receipt Date: 20150310
  Transmission Date: 20150721
  Serious: Yes (Other)
  Sender: FDA-Public Use
  Company Number: GB-TARO PHARMACEUTICALS U.S.A., INC-2015SUN00659

PATIENT
  Age: 73 Year
  Sex: Female
  Weight: 57.15 kg

DRUGS (2)
  1. METFORMIN [Concomitant]
     Active Substance: METFORMIN HYDROCHLORIDE
     Indication: TYPE 2 DIABETES MELLITUS
     Route: 048
  2. WARFARIN [Suspect]
     Active Substance: WARFARIN
     Indication: ANTICOAGULANT THERAPY
     Dosage: VARIED, DAILY DOSE IN EVENING.
     Route: 048
     Dates: start: 201402, end: 201410

REACTIONS (6)
  - Eye swelling [Recovering/Resolving]
  - Asthenopia [Recovering/Resolving]
  - Head discomfort [Recovering/Resolving]
  - Mental impairment [Recovering/Resolving]
  - Memory impairment [Recovering/Resolving]
  - Headache [Recovering/Resolving]

NARRATIVE: CASE EVENT DATE: 201410
